FAERS Safety Report 7944918 (Version 2)
Quarter: 2015Q3

REPORT INFORMATION
  Report Type: Report from Study
  Country: US (occurrence: US)
  Receive Date: 20110516
  Receipt Date: 20150824
  Transmission Date: 20151125
  Serious: Yes (Hospitalization)
  Sender: FDA-Public Use
  Company Number: US-BIOGENIDEC-2011BI017151

PATIENT
  Age: 55 Year
  Sex: Female

DRUGS (3)
  1. AVONEX [Suspect]
     Active Substance: INTERFERON BETA-1A
     Indication: MULTIPLE SCLEROSIS
     Route: 030
  2. AVONEX [Suspect]
     Active Substance: INTERFERON BETA-1A
     Indication: MULTIPLE SCLEROSIS
     Route: 030
     Dates: start: 20090401
  3. AVONEX [Suspect]
     Active Substance: INTERFERON BETA-1A
     Indication: MULTIPLE SCLEROSIS
     Route: 030
     Dates: start: 20090512, end: 20150701

REACTIONS (18)
  - Cardiac valve disease [Not Recovered/Not Resolved]
  - Haemorrhage [Recovered/Resolved]
  - Pain [Recovered/Resolved]
  - Dyspnoea [Recovered/Resolved]
  - Cataract [Not Recovered/Not Resolved]
  - Back pain [Not Recovered/Not Resolved]
  - Depression [Not Recovered/Not Resolved]
  - Pyrexia [Recovered/Resolved]
  - Cardiac perforation [Recovered/Resolved]
  - Strabismus [Not Recovered/Not Resolved]
  - Pain in extremity [Recovered/Resolved]
  - Atrial fibrillation [Recovered/Resolved]
  - Insomnia [Recovered/Resolved]
  - Cardiomegaly [Not Recovered/Not Resolved]
  - Heart rate irregular [Recovered/Resolved]
  - Chills [Recovered/Resolved]
  - Muscle tightness [Unknown]
  - Hyperhidrosis [Recovered/Resolved]

NARRATIVE: CASE EVENT DATE: 2009
